FAERS Safety Report 7225937-X (Version None)
Quarter: 2011Q1

REPORT INFORMATION
  Report Type: 
  Country: None (occurrence: None)
  Receive Date: 20110113
  Receipt Date: 20110106
  Transmission Date: 20110831
  Serious: Yes (Other)
  Sender: FDA-Public Use
  Company Number: US-PFIZER INC-2011004218

PATIENT
  Sex: Female
  Weight: 75.28 kg

DRUGS (4)
  1. LYRICA [Suspect]
     Indication: JOINT SPRAIN
     Dosage: UNK, 2X/DAY
     Route: 048
     Dates: start: 20090701, end: 20091101
  2. SOMA [Concomitant]
     Indication: MUSCLE RELAXANT THERAPY
     Dosage: UNK
  3. CYCLOBENZAPRINE [Concomitant]
     Dosage: UNK, 3X/DAY
  4. CELEBREX [Suspect]
     Indication: JOINT SPRAIN
     Dosage: UNK, 2X/DAY
     Route: 048
     Dates: start: 20090701, end: 20091101

REACTIONS (2)
  - MASS [None]
  - RASH [None]
